FAERS Safety Report 24786318 (Version 1)
Quarter: 2024Q4

REPORT INFORMATION
  Report Type: Spontaneous
  Country: CN (occurrence: CN)
  Receive Date: 20241229
  Receipt Date: 20241229
  Transmission Date: 20250114
  Serious: Yes (Hospitalization, Other)
  Sender: NOVO NORDISK
  Company Number: None

PATIENT
  Age: 37 Year
  Sex: Female

DRUGS (1)
  1. LEVEMIR [Suspect]
     Active Substance: INSULIN DETEMIR
     Indication: Gestational diabetes
     Dosage: 20 IU, QD(BEFORE BEDTIME)
     Route: 058
     Dates: start: 20241105

REACTIONS (4)
  - Type 1 diabetes mellitus [Not Recovered/Not Resolved]
  - Rash [Not Recovered/Not Resolved]
  - Diabetic ketosis [Unknown]
  - Drug hypersensitivity [Unknown]

NARRATIVE: CASE EVENT DATE: 20241204
